FAERS Safety Report 5834285-1 (Version None)
Quarter: 2008Q3

REPORT INFORMATION
  Report Type: 
  Country: None (occurrence: None)
  Receive Date: 20080805
  Receipt Date: 20080730
  Transmission Date: 20090109
  Serious: Yes (Death)
  Sender: FDA-Public Use
  Company Number: PHHY2008JP16257

PATIENT
  Age: 30 Year
  Sex: Male

DRUGS (5)
  1. TEGRETOL [Suspect]
  2. MYSLEE [Suspect]
  3. METAMFETAMINE HYDROCHLORIDE [Suspect]
  4. LEVOMEPROMAZINE MALEATE [Suspect]
  5. PHENOBARBITAL TAB [Suspect]

REACTIONS (1)
  - DRUG TOXICITY [None]
